FAERS Safety Report 17925427 (Version 6)
Quarter: 2020Q3

REPORT INFORMATION
  Report Type: Report from Study
  Country: None (occurrence: ES)
  Receive Date: 20200623
  Receipt Date: 20200818
  Transmission Date: 20201103
  Serious: Yes (Other)
  Sender: FDA-Public Use
  Company Number: ES-ABBVIE-20K-144-3448422-00

PATIENT
  Age: 75 Year
  Sex: Female

DRUGS (3)
  1. SINTROM [Concomitant]
     Active Substance: ACENOCOUMAROL
     Indication: PRODUCT USED FOR UNKNOWN INDICATION
     Dates: end: 202006
  2. DUODOPA [Suspect]
     Active Substance: CARBIDOPA\LEVODOPA
     Indication: PARKINSON^S DISEASE
     Route: 050
     Dates: start: 20190614, end: 202006
  3. DUODOPA [Suspect]
     Active Substance: CARBIDOPA\LEVODOPA
     Dosage: DOSE DECREASED
     Route: 050
     Dates: start: 202006

REACTIONS (14)
  - Abdominal discomfort [Recovered/Resolved]
  - Stoma site infection [Recovered/Resolved]
  - Bezoar [Unknown]
  - Intestinal dilatation [Recovering/Resolving]
  - Incorrect route of product administration [Not Recovered/Not Resolved]
  - Procedural nausea [Recovered/Resolved]
  - Dyskinesia [Not Recovered/Not Resolved]
  - Surgery [Unknown]
  - Asthenia [Unknown]
  - Gastric ulcer [Recovered/Resolved]
  - On and off phenomenon [Unknown]
  - Depressed mood [Unknown]
  - Dysphagia [Unknown]
  - Stoma site hypergranulation [Recovered/Resolved]

NARRATIVE: CASE EVENT DATE: 2020
